FAERS Safety Report 16867403 (Version 1)
Quarter: 2019Q3

REPORT INFORMATION
  Report Type: Spontaneous
  Country: TR (occurrence: TR)
  Receive Date: 20190930
  Receipt Date: 20190930
  Transmission Date: 20191005
  Serious: Yes (Death, Other)
  Sender: FDA-Public Use
  Company Number: TR-JNJFOC-20190923956

PATIENT

DRUGS (1)
  1. IMBRUVICA [Suspect]
     Active Substance: IBRUTINIB
     Indication: CHRONIC LYMPHOCYTIC LEUKAEMIA
     Route: 065

REACTIONS (12)
  - Chronic lymphocytic leukaemia [Unknown]
  - Infection [Fatal]
  - Thrombocytopenia [Unknown]
  - Decreased appetite [Unknown]
  - Pleural effusion [Unknown]
  - Myocardial infarction [Fatal]
  - Sepsis [Fatal]
  - Neutropenia [Unknown]
  - Diarrhoea [Unknown]
  - Herpes zoster [Unknown]
  - Liver function test increased [Unknown]
  - Anaemia [Unknown]
